FAERS Safety Report 4271975-9 (Version None)
Quarter: 2004Q1

REPORT INFORMATION
  Report Type: 
  Country: None (occurrence: None)
  Receive Date: 20040115
  Receipt Date: 20020617
  Transmission Date: 20041129
  Serious: Yes (Hospitalization, Other)
  Sender: FDA-Public Use
  Company Number: US-BRISTOL-MYERS SQUIBB COMPANY-11911963

PATIENT
  Age: 57 Year
  Sex: Male

DRUGS (9)
  1. ATORVASTATIN [Suspect]
     Dosage: MOST RECENT DOSE PRIOR TO EVENT WAS ON 09-JUN-2002.
     Route: 048
     Dates: start: 20011015
  2. COUMADIN [Suspect]
     Dates: start: 20011001, end: 20020418
  3. ALTACE [Concomitant]
     Route: 048
     Dates: start: 20011011
  4. ASPIRIN [Concomitant]
     Route: 048
     Dates: start: 20011011
  5. PLAVIX [Concomitant]
     Route: 048
     Dates: start: 20020418
  6. PREVACID [Concomitant]
     Route: 048
     Dates: start: 20020501
  7. PANCREASE [Concomitant]
     Dosage: DOSAGE FORM IS TABLET
     Route: 048
     Dates: start: 20011108
  8. KLONOPIN [Concomitant]
     Route: 048
     Dates: start: 20020326
  9. COREG [Concomitant]
     Route: 048
     Dates: start: 20020418

REACTIONS (1)
  - TRANSIENT ISCHAEMIC ATTACK [None]
